FAERS Safety Report 4657658-1 (Version None)
Quarter: 2005Q2

REPORT INFORMATION
  Report Type: 
  Country: None (occurrence: None)
  Receive Date: 20050408
  Receipt Date: 20050303
  Transmission Date: 20051028
  Serious: Yes (Hospitalization)
  Sender: FDA-Public Use
  Company Number: 230799K05USA

PATIENT
  Age: 45 Year
  Sex: Male

DRUGS (4)
  1. REBIF [Suspect]
     Indication: MULTIPLE SCLEROSIS
     Dates: start: 20020101, end: 20041101
  2. BACLOFEN [Concomitant]
  3. MECLIZINE [Concomitant]
  4. NEURONTIN [Concomitant]

REACTIONS (5)
  - ANOREXIA [None]
  - HEPATITIS [None]
  - INSOMNIA [None]
  - NAUSEA [None]
  - VOMITING [None]
